FAERS Safety Report 7888837-8 (Version None)
Quarter: 2011Q4

REPORT INFORMATION
  Report Type: 
  Country: None (occurrence: None)
  Receive Date: 20111031
  Receipt Date: 20111021
  Transmission Date: 20120403
  Serious: Yes (Other)
  Sender: FDA-Public Use
  Company Number: 2010SP039610

PATIENT
  Age: 70 Year
  Sex: Male
  Weight: 73 kg

DRUGS (6)
  1. CALCIUM CHANNEL BLOCKERS [Concomitant]
  2. VENLAFAXINE [Suspect]
     Indication: DEPRESSION
     Dosage: 37.5 MG;QD
     Dates: start: 20060601
  3. VENLAFAXINE [Suspect]
     Indication: ANXIETY
     Dosage: 37.5 MG;QD
     Dates: start: 20060601
  4. CLONAZEPAM [Concomitant]
  5. MIRTAZAPINE [Suspect]
     Indication: ANXIETY
     Dosage: 15 MG;QPM;PO ; 30 MG;QPM;PO ; 45 MG;QPM;PO
     Route: 048
     Dates: start: 20060101
  6. MIRTAZAPINE [Suspect]
     Indication: DEPRESSION
     Dosage: 15 MG;QPM;PO ; 30 MG;QPM;PO ; 45 MG;QPM;PO
     Route: 048
     Dates: start: 20060101

REACTIONS (5)
  - GAIT DISTURBANCE [None]
  - DRUG WITHDRAWAL SYNDROME [None]
  - MALAISE [None]
  - PARKINSONIAN GAIT [None]
  - COGWHEEL RIGIDITY [None]
